FAERS Safety Report 15479178 (Version 1)
Quarter: 2018Q4

REPORT INFORMATION
  Report Type: Spontaneous
  Country: AU (occurrence: AU)
  Receive Date: 20181009
  Receipt Date: 20181009
  Transmission Date: 20190205
  Serious: Yes (Other)
  Sender: FDA-Public Use
  Company Number: AU-IMPAX LABORATORIES, INC-2018-IPXL-03347

PATIENT
  Sex: Female

DRUGS (2)
  1. URSODIOL. [Suspect]
     Active Substance: URSODIOL
     Indication: JAUNDICE
     Dosage: UNK
     Route: 065
     Dates: start: 2005
  2. URSODIOL. [Suspect]
     Active Substance: URSODIOL
     Indication: CHOLESTASIS OF PREGNANCY

REACTIONS (4)
  - Preterm premature rupture of membranes [Unknown]
  - Meconium in amniotic fluid [Unknown]
  - Therapeutic response decreased [Unknown]
  - Maternal exposure during pregnancy [Unknown]
